FAERS Safety Report 16387081 (Version 1)
Quarter: 2019Q2

REPORT INFORMATION
  Report Type: Spontaneous
  Country: BR (occurrence: BR)
  Receive Date: 20190604
  Receipt Date: 20190604
  Transmission Date: 20190711
  Serious: Yes (Other)
  Sender: FDA-Public Use
  Company Number: BR-ROCHE-2326091

PATIENT
  Sex: Female
  Weight: 48 kg

DRUGS (5)
  1. SERTRALINE [Concomitant]
     Active Substance: SERTRALINE HYDROCHLORIDE
     Indication: DEPRESSION
  2. PILOCARPINE HYDROCHLORIDE;TIMOLOL MALEATE [Concomitant]
  3. MABTHERA [Suspect]
     Active Substance: RITUXIMAB
     Indication: PRODUCT USED FOR UNKNOWN INDICATION
     Dosage: 6 INFUSIONS IN 3 YEARS
     Route: 041
     Dates: start: 20190123, end: 20190206
  4. ATORVASTATIN [Concomitant]
     Active Substance: ATORVASTATIN
     Indication: BLOOD CHOLESTEROL INCREASED
  5. SERTRALINE [Concomitant]
     Active Substance: SERTRALINE HYDROCHLORIDE
     Indication: AGITATION

REACTIONS (2)
  - Blindness unilateral [Not Recovered/Not Resolved]
  - Drug ineffective [Unknown]
